FAERS Safety Report 16637836 (Version 2)
Quarter: 2019Q3

REPORT INFORMATION
  Report Type: Spontaneous
  Country: CN (occurrence: CN)
  Receive Date: 20190726
  Receipt Date: 20190801
  Transmission Date: 20191004
  Serious: Yes (Death, Other)
  Sender: FDA-Public Use
  Company Number: CN-ASTRAZENECA-2019SF06895

PATIENT
  Age: 798 Month
  Sex: Female

DRUGS (2)
  1. LYNPARZA [Suspect]
     Active Substance: OLAPARIB
     Indication: OVARIAN EPITHELIAL CANCER
     Dosage: 300.0MG UNKNOWN
     Route: 048
  2. LYNPARZA [Suspect]
     Active Substance: OLAPARIB
     Indication: OVARIAN EPITHELIAL CANCER
     Dosage: UNKNOWN
     Route: 048

REACTIONS (14)
  - Platelet count decreased [Fatal]
  - Metastasis [Unknown]
  - Asthma [Fatal]
  - Oropharyngeal pain [Fatal]
  - Haematochezia [Fatal]
  - Malignant neoplasm progression [Unknown]
  - Cachexia [Fatal]
  - Malaise [Fatal]
  - Decreased appetite [Fatal]
  - White blood cell count decreased [Fatal]
  - Multiple organ dysfunction syndrome [Fatal]
  - Asthenia [Fatal]
  - Dyspnoea [Fatal]
  - Nasopharyngitis [Fatal]

NARRATIVE: CASE EVENT DATE: 2019
